FAERS Safety Report 5519726-1 (Version None)
Quarter: 2007Q4

REPORT INFORMATION
  Report Type: 
  Country: None (occurrence: None)
  Receive Date: 20071116
  Receipt Date: 20070724
  Transmission Date: 20080405
  Serious: No
  Sender: FDA-Public Use
  Company Number: A0666072A

PATIENT
  Age: 77 Year
  Sex: Male

DRUGS (8)
  1. COREG CR [Suspect]
     Indication: HYPERTENSION
     Dosage: 40MG PER DAY
     Route: 048
     Dates: start: 20070601, end: 20070701
  2. GLYBURIDE [Concomitant]
  3. BYETTA [Concomitant]
  4. HYZAAR [Concomitant]
  5. LIPITOR [Concomitant]
  6. ASPIRIN [Concomitant]
  7. MULTI-VITAMIN [Concomitant]
  8. CALCIUM [Concomitant]

REACTIONS (2)
  - BLOOD PRESSURE DECREASED [None]
  - SLUGGISHNESS [None]
